FAERS Safety Report 7635237-1 (Version None)
Quarter: 2011Q3

REPORT INFORMATION
  Report Type: 
  Country: None (occurrence: None)
  Receive Date: 20110726
  Receipt Date: 20110714
  Transmission Date: 20111222
  Serious: Yes (Hospitalization)
  Sender: FDA-Public Use
  Company Number: US-UCBSA-032500

PATIENT
  Sex: Female

DRUGS (7)
  1. LOVASTATIN [Concomitant]
     Indication: BLOOD CHOLESTEROL INCREASED
     Dosage: UNKNOWN DOSE
     Route: 048
  2. CELEXA [Concomitant]
     Dosage: UNKNOWN DOSE
     Route: 048
  3. CIMZIA [Suspect]
     Route: 058
     Dates: start: 20110428
  4. CIMZIA [Suspect]
     Indication: CROHN'S DISEASE
     Route: 058
     Dates: start: 20100701
  5. HYZAAR [Concomitant]
     Indication: HYPERTENSION
     Dosage: UNKNOWN DOSE
     Route: 048
  6. DILTIAZEM [Concomitant]
     Indication: HYPERTENSION
     Dosage: UNKNOWN DOSE
     Route: 048
  7. PREVACID [Concomitant]

REACTIONS (4)
  - APPENDICITIS [None]
  - COLITIS ULCERATIVE [None]
  - UPPER RESPIRATORY TRACT INFECTION [None]
  - PROCTALGIA [None]
